FAERS Safety Report 23212468 (Version 2)
Quarter: 2024Q1

REPORT INFORMATION
  Report Type: Spontaneous
  Country: NL (occurrence: NL)
  Receive Date: 20231121
  Receipt Date: 20240213
  Transmission Date: 20240409
  Serious: No
  Sender: FDA-Public Use
  Company Number: None

PATIENT
  Age: 80 Year
  Sex: Male
  Weight: 74 kg

DRUGS (1)
  1. LEVOFLOXACIN [Suspect]
     Active Substance: LEVOFLOXACIN
     Indication: Epididymal disorder
     Dosage: DOSAGE TEXT:  1 PIECE ONCE PER DAY  , BRAND NAME NOT SPECIFIED
     Route: 065
     Dates: start: 20231020, end: 20231024

REACTIONS (2)
  - Tendon pain [Recovering/Resolving]
  - Myalgia [Recovering/Resolving]
